FAERS Safety Report 15950763 (Version 2)
Quarter: 2019Q1

REPORT INFORMATION
  Report Type: Spontaneous
  Country: ES (occurrence: ES)
  Receive Date: 20190212
  Receipt Date: 20190318
  Transmission Date: 20190417
  Serious: Yes (Death, Other)
  Sender: FDA-Public Use
  Company Number: ES-ABBVIE-19K-144-2658410-00

PATIENT
  Age: 45 Year
  Sex: Male
  Weight: 67 kg

DRUGS (5)
  1. VENCLYXTO [Suspect]
     Active Substance: VENETOCLAX
     Indication: DIFFUSE LARGE B-CELL LYMPHOMA REFRACTORY
     Route: 048
     Dates: start: 20190104, end: 20190202
  2. ETOPOSIDE. [Concomitant]
     Active Substance: ETOPOSIDE
     Indication: DIFFUSE LARGE B-CELL LYMPHOMA REFRACTORY
     Route: 042
     Dates: start: 20190201, end: 20190203
  3. VENCLYXTO [Suspect]
     Active Substance: VENETOCLAX
     Indication: DIFFUSE LARGE B-CELL LYMPHOMA REFRACTORY
  4. OBINUTUZUMAB. [Concomitant]
     Active Substance: OBINUTUZUMAB
     Indication: DIFFUSE LARGE B-CELL LYMPHOMA REFRACTORY
     Route: 042
     Dates: start: 20190201, end: 20190201
  5. IFOSFAMIDE. [Concomitant]
     Active Substance: IFOSFAMIDE
     Indication: DIFFUSE LARGE B-CELL LYMPHOMA REFRACTORY
     Route: 042
     Dates: start: 20190201, end: 20190204

REACTIONS (9)
  - Off label use [Unknown]
  - Depressed level of consciousness [Fatal]
  - Intervertebral disc degeneration [Unknown]
  - Aphasia [Fatal]
  - Disorientation [Fatal]
  - Gliosis [Unknown]
  - Abnormal behaviour [Fatal]
  - Psychomotor hyperactivity [Fatal]
  - Demyelination [Unknown]

NARRATIVE: CASE EVENT DATE: 20190203
